FAERS Safety Report 10757777 (Version 1)
Quarter: 2015Q1

REPORT INFORMATION
  Report Type: Spontaneous
  Country: US (occurrence: None)
  Receive Date: 20150202
  Receipt Date: 20150202
  Transmission Date: 20150721
  Serious: No
  Sender: FDA-Public Use
  Company Number: None

PATIENT
  Age: 68 Year
  Sex: Male

DRUGS (1)
  1. GABAPENTIN. [Suspect]
     Active Substance: GABAPENTIN
     Indication: NEUROPATHY PERIPHERAL
     Dosage: 1 TABLET 6 TIMES DAILY PRN ORAL
     Route: 048

REACTIONS (3)
  - Drug ineffective [None]
  - Product quality issue [None]
  - Breakthrough pain [None]

NARRATIVE: CASE EVENT DATE: 20150110
